FAERS Safety Report 5585323-5 (Version None)
Quarter: 2008Q1

REPORT INFORMATION
  Report Type: 
  Country: None (occurrence: None)
  Receive Date: 20080109
  Receipt Date: 20080103
  Transmission Date: 20080703
  Serious: Yes (Life-Threatening, Hospitalization)
  Sender: FDA-Public Use
  Company Number: ES-WYE-H02011908

PATIENT
  Age: 37 Year
  Sex: Female

DRUGS (3)
  1. GYNOVIN [Suspect]
     Indication: CONTRACEPTION
     Dosage: NOT PROVIDED
     Route: 048
     Dates: start: 20060101, end: 20071114
  2. EFFERALGAN [Suspect]
     Indication: HEADACHE
     Dosage: 3 TIMES A DAY
     Route: 048
     Dates: start: 20071107, end: 20071114
  3. IBUPROFEN [Suspect]
     Indication: HEADACHE
     Route: 048
     Dates: start: 20071102, end: 20071103

REACTIONS (5)
  - ACUTE HEPATIC FAILURE [None]
  - ASTHENIA [None]
  - MALAISE [None]
  - NAUSEA [None]
  - VOMITING [None]
